FAERS Safety Report 4331430-4 (Version None)
Quarter: 2004Q1

REPORT INFORMATION
  Report Type: 
  Country: None (occurrence: None)
  Receive Date: 20040329
  Receipt Date: 20040119
  Transmission Date: 20041129
  Serious: Yes (Hospitalization, Other)
  Sender: FDA-Public Use
  Company Number: KII-2004-0008218

PATIENT
  Age: 1 Year
  Sex: Male

DRUGS (1)
  1. OXYCONTIN [Suspect]
     Indication: DRUG USE FOR UNKNOWN INDICATION

REACTIONS (10)
  - ACCIDENTAL EXPOSURE [None]
  - AGITATION [None]
  - APNOEA [None]
  - COMA [None]
  - CONVULSION [None]
  - HYPOVENTILATION [None]
  - MIOSIS [None]
  - OBSTRUCTIVE AIRWAYS DISORDER [None]
  - POSTICTAL STATE [None]
  - WHEEZING [None]
